FAERS Safety Report 7577230-3 (Version None)
Quarter: 2011Q2

REPORT INFORMATION
  Report Type: 
  Country: None (occurrence: None)
  Receive Date: 20110628
  Receipt Date: 20110601
  Transmission Date: 20111010
  Serious: Yes (Hospitalization, Other)
  Sender: FDA-Public Use
  Company Number: US-BAYER-2011-024393

PATIENT
  Age: 51 Year
  Sex: Female

DRUGS (11)
  1. YASMIN [Suspect]
     Indication: MENORRHAGIA
     Dosage: UNK
     Route: 048
     Dates: start: 20060501, end: 20070201
  2. CELEBREX [Concomitant]
  3. ELAVIL [Concomitant]
  4. ASPIRIN [Concomitant]
  5. FOSAMAX [Concomitant]
  6. ZOLOFT [Concomitant]
  7. AMITRIPTYLINE HCL [Concomitant]
  8. ADVIL LIQUI-GELS [Concomitant]
     Indication: HEADACHE
  9. PROTONIX [Concomitant]
  10. GABAPENTIN [Concomitant]
  11. SYNTHROID [Concomitant]

REACTIONS (17)
  - CEREBROVASCULAR ACCIDENT [None]
  - DIZZINESS [None]
  - HEADACHE [None]
  - AMNESIA [None]
  - DEPRESSION [None]
  - HEMIPARESIS [None]
  - SUICIDAL IDEATION [None]
  - FALL [None]
  - SWELLING [None]
  - CONFUSIONAL STATE [None]
  - HAEMATOMA [None]
  - BLINDNESS [None]
  - CONVULSION [None]
  - BRAIN INJURY [None]
  - MENTAL DISORDER [None]
  - CONTUSION [None]
  - MUSCLE SPASTICITY [None]
